FAERS Safety Report 17812676 (Version 5)
Quarter: 2020Q4

REPORT INFORMATION
  Report Type: Spontaneous
  Country: US (occurrence: US)
  Receive Date: 20200521
  Receipt Date: 20201125
  Transmission Date: 20210113
  Serious: Yes (Other)
  Sender: FDA-Public Use
  Company Number: US-AMGEN-USASP2020080375

PATIENT
  Age: 63 Year
  Sex: Female

DRUGS (3)
  1. PROLIA [Suspect]
     Active Substance: DENOSUMAB
     Indication: OSTEOPOROSIS POSTMENOPAUSAL
     Dosage: 60 MILLIGRAM, Q6MO
     Route: 065
     Dates: start: 20200414
  2. CALCIUM [Concomitant]
     Active Substance: CALCIUM
  3. VIT D [Concomitant]
     Active Substance: VITAMIN D NOS

REACTIONS (7)
  - Sudden hearing loss [Not Recovered/Not Resolved]
  - Viral infection [Unknown]
  - Rheumatoid factor positive [Unknown]
  - Nervousness [Unknown]
  - Ear pain [Unknown]
  - Autoantibody positive [Unknown]
  - Fear of injection [Unknown]

NARRATIVE: CASE EVENT DATE: 2020
